FAERS Safety Report 5408450-1 (Version None)
Quarter: 2007Q3

REPORT INFORMATION
  Report Type: 
  Country: None (occurrence: None)
  Receive Date: 20070806
  Receipt Date: 20070724
  Transmission Date: 20080115
  Serious: Yes (Hospitalization)
  Sender: FDA-Public Use
  Company Number: 237450K06USA

PATIENT
  Age: 56 Year
  Sex: Female

DRUGS (3)
  1. REBIF [Suspect]
     Indication: MULTIPLE SCLEROSIS
     Dosage: 44 MCG, 3 IN 1 WEEKS, SUBCUTANEOUS
     Route: 058
     Dates: start: 20060816
  2. OXYBUTYNIN CHLORIDE [Concomitant]
  3. ACTOS [Concomitant]

REACTIONS (4)
  - BLADDER NEOPLASM [None]
  - CYSTITIS [None]
  - GASTRIC ULCER [None]
  - SKIN ULCER [None]
